FAERS Safety Report 7496291-3 (Version None)
Quarter: 2011Q2

REPORT INFORMATION
  Report Type: 
  Country: None (occurrence: None)
  Receive Date: 20110523
  Receipt Date: 20110504
  Transmission Date: 20111010
  Serious: No
  Sender: FDA-Public Use
  Company Number: US-B.I. PHARMACEUTICALS,INC./RIDGEFIELD-2011-BP-05587BP

PATIENT
  Sex: Male

DRUGS (3)
  1. VITAMINS [Concomitant]
  2. PRADAXA [Suspect]
     Indication: ATRIAL FIBRILLATION
     Dosage: 300 MG
     Route: 048
     Dates: start: 20101205
  3. MICARDIS [Concomitant]
     Indication: HYPERTENSION
     Dosage: 40 MG
     Dates: start: 20110208

REACTIONS (6)
  - DYSPNOEA [None]
  - FLUSHING [None]
  - SKIN EXFOLIATION [None]
  - EPISTAXIS [None]
  - DIARRHOEA [None]
  - LACERATION [None]
